FAERS Safety Report 15935711 (Version 1)
Quarter: 2019Q1

REPORT INFORMATION
  Report Type: Spontaneous
  Country: IT (occurrence: IT)
  Receive Date: 20190208
  Receipt Date: 20190208
  Transmission Date: 20190417
  Serious: Yes (Life-Threatening, Hospitalization, Other)
  Sender: FDA-Public Use
  Company Number: IT-JNJFOC-20190139732

PATIENT
  Age: 48 Year
  Sex: Female

DRUGS (4)
  1. IBUPROFEN. [Suspect]
     Active Substance: IBUPROFEN
     Indication: PERICARDIAL EFFUSION
     Dosage: 600 MG THRICE A DAY
     Route: 065
  2. INFLUENZA VACCINE [Suspect]
     Active Substance: INFLUENZA VIRUS VACCINE
     Indication: PROPHYLAXIS
     Route: 065
  3. IBUPROFEN. [Suspect]
     Active Substance: IBUPROFEN
     Route: 065
  4. COLCHICINE. [Suspect]
     Active Substance: COLCHICINE
     Indication: PERICARDIAL EFFUSION
     Dosage: 0.5 MG TWICE A DAY
     Route: 065

REACTIONS (19)
  - Cardiac murmur [Recovered/Resolved]
  - Drug ineffective [Recovered/Resolved]
  - Influenza [Recovered/Resolved]
  - Dyspnoea [Recovered/Resolved]
  - Mitral valve incompetence [Recovered/Resolved]
  - Hypoxia [Recovered/Resolved]
  - Cardiomegaly [Recovered/Resolved]
  - Tricuspid valve incompetence [Recovered/Resolved]
  - Metabolic alkalosis [Recovered/Resolved]
  - Vaccination failure [Recovered/Resolved]
  - Syncope [Recovered/Resolved]
  - Respiratory failure [Recovered/Resolved]
  - Pericardial effusion [Recovered/Resolved]
  - Respiratory alkalosis [Recovered/Resolved]
  - Diastolic dysfunction [Recovered/Resolved]
  - Diarrhoea [Recovered/Resolved]
  - Atelectasis [Recovered/Resolved]
  - Pericarditis [Recovered/Resolved]
  - Bronchial wall thickening [Recovered/Resolved]
